FAERS Safety Report 21832881 (Version 1)
Quarter: 2023Q1

REPORT INFORMATION
  Report Type: Spontaneous
  Country: US (occurrence: US)
  Receive Date: 20230106
  Receipt Date: 20230106
  Transmission Date: 20230417
  Serious: No
  Sender: FDA-Public Use
  Company Number: US-ALLERGAN-2238208US

PATIENT
  Age: 50 Year
  Sex: Female

DRUGS (1)
  1. QULIPTA [Suspect]
     Active Substance: ATOGEPANT
     Indication: Migraine
     Dosage: UNK

REACTIONS (6)
  - Parosmia [Unknown]
  - Hyperacusis [Unknown]
  - Photophobia [Unknown]
  - Taste disorder [Unknown]
  - Product use issue [Unknown]
  - Migraine [Unknown]

NARRATIVE: CASE EVENT DATE: 20221101
